FAERS Safety Report 5102724-X (Version None)
Quarter: 2006Q3

REPORT INFORMATION
  Report Type: 
  Country: None (occurrence: None)
  Receive Date: 20060907
  Receipt Date: 20060825
  Transmission Date: 20061208
  Serious: Yes (Hospitalization)
  Sender: FDA-Public Use
  Company Number: 2006-147270-NL

PATIENT
  Age: 67 Year
  Sex: Male

DRUGS (9)
  1. VECURONIUM BROMIDE [Suspect]
     Indication: ANAESTHESIA
     Dosage: 22 MG INTRAVENOUS (NOS)
     Route: 042
     Dates: start: 20060802, end: 20060802
  2. NALOXONE HCL [Suspect]
     Indication: ANAESTHESIA REVERSAL
     Dosage: 22 MG INTRAVENOUS (NOS)
     Route: 042
     Dates: start: 20060802, end: 20060802
  3. FENTANYL CITRATE [Suspect]
     Indication: ANAESTHESIA
     Dosage: 2 DF INTRAVENOUS (NOS)
     Route: 042
     Dates: start: 20060802, end: 20060802
  4. THIAMYLAL SODIUM [Suspect]
     Indication: ANAESTHESIA
     Dosage: 500 MG INTRAVENOUS (NOS)
     Route: 042
     Dates: start: 20060802, end: 20060802
  5. PROPOFOL [Suspect]
     Indication: ANAESTHESIA
     Dosage: 130 ML INTRAVENOUS (NOS)
     Route: 042
     Dates: start: 20060802, end: 20060802
  6. GLYCERYL TRINITRATE [Suspect]
     Indication: ANAESTHESIA
     Dosage: 0.25 MG/KG INTRAVENOUS (NOS)
     Route: 042
     Dates: start: 20060802, end: 20060802
  7. DOPAMINE HCL [Suspect]
     Indication: ANAESTHESIA
     Dosage: 3 G INTRAVENOUS (NOS)
     Route: 042
     Dates: start: 20060802, end: 20060802
  8. ATROPINE SULFATE [Suspect]
     Indication: ANAESTHESIA
     Dosage: 1 DF INTRAVENOUS (NOS)
     Route: 042
     Dates: start: 20060802, end: 20060802
  9. PHENYLEPHRINE HYDROCHLORIDE [Suspect]
     Indication: ANAESTHESIA
     Dosage: 0.4 DF INTRAVENOUS (NOS)
     Route: 042
     Dates: start: 20060802, end: 20060802

REACTIONS (2)
  - ACUTE PULMONARY OEDEMA [None]
  - DELAYED RECOVERY FROM ANAESTHESIA [None]
